FAERS Safety Report 10222716 (Version 5)
Quarter: 2015Q2

REPORT INFORMATION
  Report Type: Report from Study
  Country: BR (occurrence: BR)
  Receive Date: 20140606
  Receipt Date: 20150407
  Transmission Date: 20150821
  Serious: Yes (Hospitalization, Other)
  Sender: FDA-Public Use
  Company Number: BR-ABBVIE-10P-020-0689050-00

PATIENT
  Sex: Female
  Weight: 31 kg

DRUGS (21)
  1. HUMIRA [Suspect]
     Active Substance: ADALIMUMAB
     Indication: RHEUMATOID ARTHRITIS
     Route: 058
     Dates: start: 200912
  2. NIFEDIPINE. [Concomitant]
     Active Substance: NIFEDIPINE
     Indication: BLOOD PRESSURE ABNORMAL
     Route: 048
  3. HUMIRA [Suspect]
     Active Substance: ADALIMUMAB
     Route: 058
     Dates: start: 20101015
  4. RISEDRONATE [Concomitant]
     Active Substance: RISEDRONATE SODIUM
     Indication: RHEUMATOID ARTHRITIS
     Route: 048
  5. ALENDRONATE [Concomitant]
     Active Substance: ALENDRONATE SODIUM
     Indication: BLOOD PRESSURE ABNORMAL
     Route: 048
  6. TIMOLOL [Concomitant]
     Active Substance: TIMOLOL
     Indication: EYE LUBRICATION THERAPY
     Dates: start: 2006
  7. DIPIVEFRINE [Concomitant]
     Indication: EYE LUBRICATION THERAPY
     Dates: start: 201006
  8. COLLYRIUM [Concomitant]
     Indication: EYE IRRITATION
  9. RISEDRONATE [Concomitant]
     Active Substance: RISEDRONATE SODIUM
     Indication: MINERAL SUPPLEMENTATION
  10. NIFEDIPINE. [Concomitant]
     Active Substance: NIFEDIPINE
     Indication: HYPERTENSION
     Route: 048
     Dates: start: 2008
  11. FRESH TEARS [Concomitant]
     Indication: EYE LUBRICATION THERAPY
  12. REDRONATO [Concomitant]
     Indication: RHEUMATIC DISORDER
     Route: 048
  13. LACRIMA PLUS [Concomitant]
     Indication: EYE LUBRICATION THERAPY
     Dates: start: 2006
  14. EPITEGEL [Concomitant]
     Indication: EYE LUBRICATION THERAPY
     Dates: start: 201006
  15. DEPURA [Concomitant]
     Active Substance: CHOLECALCIFEROL
     Indication: OSTEOPOROSIS
     Route: 048
  16. ALENDRONATE [Concomitant]
     Active Substance: ALENDRONATE SODIUM
     Indication: MINERAL SUPPLEMENTATION
  17. RISEDRONATE [Concomitant]
     Active Substance: RISEDRONATE SODIUM
     Indication: RHEUMATIC DISORDER
  18. CALCIFLEX [Concomitant]
     Indication: OSTEOPOROSIS
     Dates: start: 201102
  19. ALENDRONATE [Concomitant]
     Active Substance: ALENDRONATE SODIUM
     Indication: RHEUMATIC DISORDER
  20. HUMIRA [Suspect]
     Active Substance: ADALIMUMAB
     Route: 058
  21. COLLYRIUM [Concomitant]
     Indication: EYE DISCHARGE
     Dosage: OCULAR TOPICAL SOLUTION, ONE DROP IN EACH EYE EVERY 4 HOURS
     Dates: start: 1995

REACTIONS (15)
  - Decreased appetite [Recovered/Resolved]
  - Loss of consciousness [Recovered/Resolved]
  - Urinary tract infection [Recovered/Resolved]
  - Emphysema [Recovered/Resolved]
  - Malaise [Recovered/Resolved]
  - Injection site haematoma [Recovered/Resolved]
  - Hypotension [Recovered/Resolved]
  - Dysphagia [Recovered/Resolved]
  - Injection site vesicles [Recovered/Resolved]
  - Blood glucose decreased [Recovered/Resolved]
  - Oral disorder [Recovered/Resolved]
  - Diabetes mellitus [Recovered/Resolved]
  - Blood glucose increased [Recovered/Resolved]
  - Injection site swelling [Recovered/Resolved]
  - Injection site erythema [Recovered/Resolved]

NARRATIVE: CASE EVENT DATE: 2010
